FAERS Safety Report 5524740-6 (Version None)
Quarter: 2007Q4

REPORT INFORMATION
  Report Type: 
  Country: None (occurrence: None)
  Receive Date: 20071123
  Receipt Date: 20071114
  Transmission Date: 20080405
  Serious: Yes (Other)
  Sender: FDA-Public Use
  Company Number: PHBS2007BR18987

PATIENT
  Age: 59 Year
  Sex: Male
  Weight: 90 kg

DRUGS (8)
  1. GLEEVEC [Suspect]
     Indication: LEUKAEMIA
     Dosage: 400 MG, BID
     Route: 048
  2. ZYLORIC [Concomitant]
     Indication: LEUKAEMIA
     Dosage: 300 MG, QD
     Route: 048
  3. LOSARTAN/ANLOPIDINE [Concomitant]
     Dosage: 50/A0 MG/D
     Route: 048
  4. LANZOPRAZOL [Concomitant]
     Indication: PAIN
     Dosage: 30 MG, QD
     Route: 048
  5. MOTILIUM [Concomitant]
     Indication: GASTRITIS
     Dosage: 1 TAB/D
     Route: 048
  6. CLORETO DE POTASSIO [Concomitant]
     Indication: MUSCLE SPASMS
     Dosage: 600 MG, QD
     Route: 048
  7. GILBENCLAMIDA [Concomitant]
     Indication: DIABETES MELLITUS
  8. GILFAGE XR [Concomitant]
     Indication: DIABETES MELLITUS
     Dosage: 1 TAB/D

REACTIONS (6)
  - DYSPNOEA [None]
  - FATIGUE [None]
  - PAIN IN EXTREMITY [None]
  - PULSE ABNORMAL [None]
  - URINARY TRACT INFECTION [None]
  - WHITE BLOOD CELL COUNT INCREASED [None]
